FAERS Safety Report 25307914 (Version 1)
Quarter: 2025Q2

REPORT INFORMATION
  Report Type: Spontaneous
  Country: US (occurrence: US)
  Receive Date: 20250513
  Receipt Date: 20250513
  Transmission Date: 20250717
  Serious: Yes (Death, Hospitalization, Other)
  Sender: AMGEN
  Company Number: US-AMGEN-USASP2025090391

PATIENT
  Age: 61 Year
  Sex: Male

DRUGS (4)
  1. ADALIMUMAB [Suspect]
     Active Substance: ADALIMUMAB
     Indication: Eczema
     Route: 065
  2. PREDNISONE [Suspect]
     Active Substance: PREDNISONE
     Indication: Eczema
     Route: 048
  3. DUPILUMAB [Concomitant]
     Active Substance: DUPILUMAB
     Indication: Eczema
  4. METHOTREXATE [Concomitant]
     Active Substance: METHOTREXATE
     Indication: Eczema

REACTIONS (11)
  - Cutaneous T-cell lymphoma [Fatal]
  - Staphylococcal bacteraemia [Unknown]
  - Hypoalbuminaemia [Unknown]
  - Hyperglycaemia [Unknown]
  - Electrolyte imbalance [Unknown]
  - Renal failure [Unknown]
  - Lymphoproliferative disorder [Unknown]
  - Drug effective for unapproved indication [Unknown]
  - Drug ineffective for unapproved indication [Unknown]
  - Off label use [Unknown]
  - Eczema [Unknown]
